FAERS Safety Report 8204774-3 (Version None)
Quarter: 2012Q1

REPORT INFORMATION
  Report Type: 
  Country: None (occurrence: None)
  Receive Date: 20120313
  Receipt Date: 20120304
  Transmission Date: 20120608
  Serious: Yes (Hospitalization)
  Sender: FDA-Public Use
  Company Number: CA-JNJFOC-20120302307

PATIENT
  Sex: Female
  Weight: 58.97 kg

DRUGS (9)
  1. FOLIC ACID [Concomitant]
     Route: 048
  2. CALCIUM+VITAMIN D [Concomitant]
     Route: 048
  3. REMICADE [Suspect]
     Indication: RHEUMATOID ARTHRITIS
     Route: 042
     Dates: start: 20050519
  4. METHOTREXATE [Concomitant]
     Route: 065
  5. CITALOPRAM HYDROBROMIDE [Concomitant]
     Route: 048
  6. LIPITOR [Concomitant]
     Route: 048
  7. ATENOLOL [Concomitant]
     Route: 048
  8. ACTONEL [Concomitant]
     Dosage: DOSAGE:25
     Route: 048
  9. VITALUX NOS [Concomitant]
     Route: 048

REACTIONS (3)
  - JOINT SWELLING [None]
  - ERYTHEMA [None]
  - INFECTION [None]
